FAERS Safety Report 14247364 (Version 1)
Quarter: 2017Q4

REPORT INFORMATION
  Report Type: Spontaneous
  Country: KR (occurrence: KR)
  Receive Date: 20171204
  Receipt Date: 20171204
  Transmission Date: 20180321
  Serious: Yes (Death, Hospitalization)
  Sender: FDA-Public Use
  Company Number: KR-CONCORDIA LABORATORIES INC.-2017-CLI-000015

PATIENT
  Age: 37 Year
  Sex: Female

DRUGS (1)
  1. PHOTOFRIN [Suspect]
     Active Substance: PORFIMER SODIUM
     Indication: TRACHEAL CANCER
     Dosage: 2 MG/KG, UNK
     Route: 042

REACTIONS (2)
  - Dyspnoea [Fatal]
  - Haemoptysis [Fatal]
